FAERS Safety Report 9500738 (Version 1)
Quarter: 2013Q3

REPORT INFORMATION
  Report Type: Spontaneous
  Country: KR (occurrence: KR)
  Receive Date: 20130905
  Receipt Date: 20130905
  Transmission Date: 20140515
  Serious: Yes (Hospitalization)
  Sender: FDA-Public Use
  Company Number: KR-MYLANLABS-2013S1019208

PATIENT
  Age: 5 Year
  Sex: Female
  Weight: 22 kg

DRUGS (9)
  1. SEVOFLURANE [Suspect]
     Indication: MAINTENANCE OF ANAESTHESIA
     Dosage: IN AIR-OXYGEN MIXTURE (FRACTION INSPIRED O2 CONCENTRATION 0.5)
     Route: 055
  2. PHENOBARBITAL [Interacting]
     Indication: STATUS EPILEPTICUS
     Dosage: 20 MG/KG FOR 20 MINUTES
     Route: 050
  3. PHENYTOIN [Interacting]
     Indication: STATUS EPILEPTICUS
     Dosage: 20 MG/KG FOR 20 MINUTES
     Route: 042
  4. VALPROIC ACID [Interacting]
     Indication: SIMPLE PARTIAL SEIZURES
     Dosage: 240 MG/DAY; THEN 10 MG/KG IV ON DAY OF SURGERY
     Route: 065
  5. VALPROIC ACID [Interacting]
     Indication: SIMPLE PARTIAL SEIZURES
     Dosage: 10 MG/KG
     Route: 042
  6. THIOPENTAL SODIUM [Concomitant]
     Indication: INDUCTION OF ANAESTHESIA
     Dosage: 110MG
     Route: 042
  7. ROCURONIUM BROMIDE [Concomitant]
     Indication: INDUCTION OF ANAESTHESIA
     Dosage: 10MG
     Route: 042
  8. MIDAZOLAM [Concomitant]
     Indication: STATUS EPILEPTICUS
     Dosage: 4MG
     Route: 042
  9. DESFLURANE [Concomitant]
     Indication: STATUS EPILEPTICUS
     Dosage: END-TIDAL CONCENTRATION 8%
     Route: 055

REACTIONS (3)
  - Status epilepticus [Recovered/Resolved]
  - Drug dose omission [Unknown]
  - Drug interaction [Unknown]
